FAERS Safety Report 17179182 (Version 1)
Quarter: 2019Q4

REPORT INFORMATION
  Report Type: Report from Study
  Country: None (occurrence: US)
  Receive Date: 20191219
  Receipt Date: 20191219
  Transmission Date: 20200122
  Serious: Yes (Hospitalization)
  Sender: FDA-Public Use
  Company Number: US-ABBVIE-19K-163-2982070-00

PATIENT
  Age: 56 Year
  Sex: Female

DRUGS (1)
  1. HUMIRA [Suspect]
     Active Substance: ADALIMUMAB
     Indication: RHEUMATOID ARTHRITIS
     Route: 058
     Dates: start: 20190920

REACTIONS (16)
  - Joint swelling [Unknown]
  - Erythema [Recovering/Resolving]
  - Diabetic ulcer [Recovering/Resolving]
  - Impaired self-care [Unknown]
  - Peripheral swelling [Unknown]
  - Arthritis infective [Recovering/Resolving]
  - Joint stiffness [Unknown]
  - Pain [Recovered/Resolved]
  - Fatigue [Not Recovered/Not Resolved]
  - Arthralgia [Recovering/Resolving]
  - Loss of personal independence in daily activities [Not Recovered/Not Resolved]
  - Musculoskeletal stiffness [Recovering/Resolving]
  - Therapeutic product effect delayed [Unknown]
  - Arthralgia [Unknown]
  - Gait disturbance [Recovered/Resolved]
  - Swelling [Unknown]

NARRATIVE: CASE EVENT DATE: 2019
